FAERS Safety Report 11946489 (Version 1)
Quarter: 2016Q1

REPORT INFORMATION
  Report Type: Spontaneous
  Country: US (occurrence: US)
  Receive Date: 20160125
  Receipt Date: 20160125
  Transmission Date: 20160526
  Serious: No
  Sender: FDA-Public Use
  Company Number: US-JNJFOC-20160105231

PATIENT
  Age: 45 Year
  Sex: Female
  Weight: 73.03 kg

DRUGS (7)
  1. CALCIUM [Concomitant]
     Active Substance: CALCIUM
     Indication: HAIR DISORDER
     Dosage: 1 YEAR
     Route: 065
  2. ALL OTHER THERAPEUTIC PRODUCTS [Concomitant]
     Active Substance: UNSPECIFIED INGREDIENT
     Indication: HAIR DISORDER
     Dosage: 3 MONTHS
     Route: 065
  3. MENS ROGAINE EXTRA STRENGTH [Suspect]
     Active Substance: MINOXIDIL
     Route: 061
  4. ALL OTHER THERAPEUTIC PRODUCTS [Concomitant]
     Active Substance: UNSPECIFIED INGREDIENT
     Indication: HAIR DISORDER
     Dosage: 3 MONTHS
     Route: 065
  5. MSM [Concomitant]
     Active Substance: DIMETHYL SULFONE
     Indication: HAIR DISORDER
     Dosage: 2 YEARS
     Route: 065
  6. MENS ROGAINE EXTRA STRENGTH [Concomitant]
     Active Substance: MINOXIDIL
     Indication: ALOPECIA
     Dosage: LESS THAN THE ONE ML DROPPERFUL
     Route: 061
     Dates: start: 20151217
  7. MENS ROGAINE EXTRA STRENGTH [Suspect]
     Active Substance: MINOXIDIL
     Indication: ALOPECIA
     Dosage: 1/2 CAPFUL
     Route: 061
     Dates: start: 20151218

REACTIONS (4)
  - Off label use [Unknown]
  - Headache [Recovered/Resolved]
  - Drug administered at inappropriate site [Recovered/Resolved]
  - Drug prescribing error [Unknown]

NARRATIVE: CASE EVENT DATE: 20151218
